FAERS Safety Report 5008985-X (Version None)
Quarter: 2006Q2

REPORT INFORMATION
  Report Type: 
  Country: None (occurrence: None)
  Receive Date: 20060519
  Receipt Date: 20060505
  Transmission Date: 20061013
  Serious: Yes (Hospitalization)
  Sender: FDA-Public Use
  Company Number: 2006S1003431

PATIENT
  Age: 39 Year
  Sex: Male

DRUGS (5)
  1. EXTENDED PHENYTOIN SODIUM [Suspect]
     Indication: CONVULSION
     Dosage: SEE IMAGE
     Route: 048
     Dates: start: 20060411, end: 20060413
  2. EXTENDED PHENYTOIN SODIUM [Suspect]
     Indication: CONVULSION
     Dosage: SEE IMAGE
     Route: 048
     Dates: start: 20060413
  3. EXTENDED PHENYTOIN SODIUM [Suspect]
     Indication: CONVULSION
     Dosage: SEE IMAGE
     Route: 048
     Dates: start: 20060414
  4. SETRALINE HCL [Concomitant]
  5. OLANZAPINE [Concomitant]

REACTIONS (1)
  - ANTICONVULSANT DRUG LEVEL DECREASED [None]
